FAERS Safety Report 5935081-7 (Version None)
Quarter: 2008Q4

REPORT INFORMATION
  Report Type: 
  Country: None (occurrence: None)
  Receive Date: 20081030
  Receipt Date: 20081021
  Transmission Date: 20090506
  Serious: No
  Sender: FDA-Public Use
  Company Number: US-BAYER-200829058NA

PATIENT
  Age: 17 Year
  Sex: Female

DRUGS (1)
  1. YAZ [Suspect]
     Indication: DRUG USE FOR UNKNOWN INDICATION
     Route: 048
     Dates: start: 20070901

REACTIONS (4)
  - ABDOMINAL PAIN [None]
  - ANOREXIA [None]
  - DEPRESSION [None]
  - INSOMNIA [None]
